FAERS Safety Report 5152220-9 (Version None)
Quarter: 2006Q4

REPORT INFORMATION
  Report Type: 
  Country: None (occurrence: None)
  Receive Date: 20061116
  Receipt Date: 20061006
  Transmission Date: 20070319
  Serious: Yes (Other)
  Sender: FDA-Public Use
  Company Number: PHBS2006ES15607

PATIENT
  Age: 73 Year
  Sex: Female

DRUGS (14)
  1. CALCIUM [Concomitant]
     Indication: OSTEOPOROSIS
     Route: 065
  2. VITAMIN D [Concomitant]
     Indication: OSTEOPOROSIS
     Route: 065
  3. CALCITONIN-SALMON [Concomitant]
     Indication: OSTEOPOROSIS
  4. CARBOPLATIN [Concomitant]
     Dosage: AUC 4
     Route: 065
  5. CARBOPLATIN [Concomitant]
     Dosage: AUC 5, DAY 1
     Route: 065
     Dates: start: 20051101
  6. GEMCITABINE [Concomitant]
     Dosage: 1000 MG/M2, ON DAY 1 + 8, EVERY 21 DAYS
     Route: 065
  7. EPOGEN [Concomitant]
     Route: 065
  8. GRANULOCYTE STIMULATING FACTORS [Concomitant]
     Route: 065
  9. PACLITAXEL [Concomitant]
     Dosage: 40 MG/M2, WEEKLY FOR 20 WEEKS
     Route: 065
  10. VINORELBINE [Concomitant]
     Dosage: 25 MG/M2, DAYS 1 AND 8 EVERY 21 DAYS
     Route: 065
     Dates: start: 20051101
  11. ZOMETA [Suspect]
     Indication: METASTASES TO BONE
     Dosage: 4 MG, EVERY 28 DAYS
     Route: 042
     Dates: start: 20040501
  12. ZOMETA [Suspect]
     Dosage: 4 MG, EVERY 21 DAYS
     Route: 042
  13. ZOMETA [Suspect]
     Dosage: 4 MG, EVERY 28 DAYS
     Route: 042
  14. ZOMETA [Suspect]
     Dosage: 4 MG, EVERY 21-28 DAYS
     Route: 042

REACTIONS (8)
  - BLOOD CREATININE INCREASED [None]
  - BLOOD GLUCOSE INCREASED [None]
  - BLOOD UREA INCREASED [None]
  - CELLULITIS [None]
  - MUCOSAL INFLAMMATION [None]
  - OSTEONECROSIS [None]
  - TOOTH EXTRACTION [None]
  - TUMOUR MARKER INCREASED [None]
